FAERS Safety Report 19635734 (Version 2)
Quarter: 2021Q3

REPORT INFORMATION
  Report Type: Spontaneous
  Country: FR (occurrence: FR)
  Receive Date: 20210730
  Receipt Date: 20210810
  Transmission Date: 20211014
  Serious: Yes (Other)
  Sender: FDA-Public Use
  Company Number: FR-BIOVITRUM-2021FR7051

PATIENT
  Age: 92 Year
  Sex: Female
  Weight: 62 kg

DRUGS (7)
  1. KINERET [Suspect]
     Active Substance: ANAKINRA
     Route: 058
  2. ARANESP [Concomitant]
     Active Substance: DARBEPOETIN ALFA
     Indication: ANAEMIA
     Route: 058
     Dates: start: 202106
  3. AMLOR [Concomitant]
     Active Substance: AMLODIPINE BESYLATE
  4. ELIQUIS [Concomitant]
     Active Substance: APIXABAN
  5. KINERET [Suspect]
     Active Substance: ANAKINRA
     Indication: CHONDROCALCINOSIS
     Route: 058
     Dates: start: 20210608
  6. FUROSEMIDE. [Concomitant]
     Active Substance: FUROSEMIDE
  7. KINERET [Suspect]
     Active Substance: ANAKINRA
     Route: 058

REACTIONS (5)
  - Myelodysplastic syndrome [Unknown]
  - Pancytopenia [Recovered/Resolved]
  - Off label use [Not Recovered/Not Resolved]
  - Anaemia [Unknown]
  - Thrombocytopenia [Unknown]

NARRATIVE: CASE EVENT DATE: 202106
